FAERS Safety Report 13568908 (Version 1)
Quarter: 2017Q2

REPORT INFORMATION
  Report Type: Spontaneous
  Country: IT (occurrence: IT)
  Receive Date: 20170522
  Receipt Date: 20170522
  Transmission Date: 20170830
  Serious: Yes (Other)
  Sender: FDA-Public Use
  Company Number: ALCN2017IT003382

PATIENT
  Age: 68 Year
  Sex: Female

DRUGS (1)
  1. AZOPT [Suspect]
     Active Substance: BRINZOLAMIDE
     Indication: GLAUCOMA
     Dosage: 2 GTT, BID (1 DROP MORNING AND EVENING FOR EACH EYE)
     Route: 047

REACTIONS (2)
  - Dysgeusia [Unknown]
  - Choking sensation [Unknown]
